FAERS Safety Report 5557732-1 (Version None)
Quarter: 2007Q4

REPORT INFORMATION
  Report Type: 
  Country: None (occurrence: None)
  Receive Date: 20071214
  Receipt Date: 20071126
  Transmission Date: 20080405
  Serious: No
  Sender: FDA-Public Use
  Company Number: US-JNJFOC-20070902536

PATIENT
  Sex: Male
  Weight: 73.48 kg

DRUGS (4)
  1. INVEGA [Suspect]
     Indication: PSYCHOTIC DISORDER
     Route: 048
  2. RISPERDAL [Concomitant]
     Indication: DRUG USE FOR UNKNOWN INDICATION
  3. COGENTIN [Concomitant]
     Indication: PROPHYLAXIS
  4. BENADRYL [Concomitant]

REACTIONS (1)
  - INFLUENZA LIKE ILLNESS [None]
